FAERS Safety Report 6074639-4 (Version None)
Quarter: 2009Q1

REPORT INFORMATION
  Report Type: 
  Country: None (occurrence: None)
  Receive Date: 20090209
  Receipt Date: 20090209
  Transmission Date: 20090719
  Serious: Yes (Death)
  Sender: FDA-Public Use
  Company Number: None

PATIENT
  Age: 49 Year
  Sex: Male

DRUGS (1)
  1. TARCEVA [Suspect]
     Indication: LUNG NEOPLASM MALIGNANT
     Dosage: 150MG DAILY PO
     Route: 048
     Dates: start: 20090117, end: 20090123

REACTIONS (3)
  - COUGH [None]
  - DYSPNOEA [None]
  - RESPIRATORY DISORDER [None]
